FAERS Safety Report 8287633-X (Version None)
Quarter: 2012Q2

REPORT INFORMATION
  Report Type: 
  Country: None (occurrence: None)
  Receive Date: 20120416
  Receipt Date: 20120410
  Transmission Date: 20120825
  Serious: Yes (Hospitalization, Other)
  Sender: FDA-Public Use
  Company Number: PHEH2012US006725

PATIENT
  Sex: Male

DRUGS (8)
  1. LIPITOR [Concomitant]
     Indication: BLOOD CHOLESTEROL INCREASED
  2. METOPROLOL [Concomitant]
  3. GILENYA [Suspect]
     Dosage: 0.5 MG, QD
     Route: 048
     Dates: start: 20110101
  4. PLAVIX [Concomitant]
  5. ASPIRIN [Concomitant]
     Dosage: 325 MG, QD
  6. LOPID [Concomitant]
  7. INDAPAMIDE [Concomitant]
  8. DILTIAZEM HCL [Concomitant]

REACTIONS (2)
  - CHEST PAIN [None]
  - MYOCARDIAL INFARCTION [None]
